FAERS Safety Report 7189638-9 (Version None)
Quarter: 2010Q4

REPORT INFORMATION
  Report Type: 
  Country: None (occurrence: None)
  Receive Date: 20101223
  Receipt Date: 20101213
  Transmission Date: 20110411
  Serious: No
  Sender: FDA-Public Use
  Company Number: US-BIOGENIDEC-2010BI043841

PATIENT
  Sex: Female

DRUGS (4)
  1. TYSABRI [Suspect]
     Indication: MULTIPLE SCLEROSIS
     Route: 042
     Dates: start: 20071123
  2. ZYRTEC [Concomitant]
     Indication: SEASONAL ALLERGY
  3. BENADRYL [Concomitant]
     Indication: SEASONAL ALLERGY
  4. CLARITIN-D [Concomitant]
     Indication: SEASONAL ALLERGY

REACTIONS (3)
  - SEASONAL ALLERGY [None]
  - SINUSITIS [None]
  - UPPER RESPIRATORY TRACT INFECTION [None]
